FAERS Safety Report 19720533 (Version 4)
Quarter: 2021Q4

REPORT INFORMATION
  Report Type: Report from Study
  Country: CA (occurrence: CA)
  Receive Date: 20210819
  Receipt Date: 20211013
  Transmission Date: 20220303
  Serious: Yes (Hospitalization, Other)
  Sender: FDA-Public Use
  Company Number: CA-JNJFOC-20210824954

PATIENT
  Age: 62 Year
  Sex: Male

DRUGS (1)
  1. SIMPONI [Suspect]
     Active Substance: GOLIMUMAB
     Indication: Psoriatic arthropathy
     Route: 058
     Dates: start: 20191009

REACTIONS (7)
  - Cellulitis [Recovered/Resolved]
  - Hypokalaemia [Recovering/Resolving]
  - Blood phosphorus decreased [Unknown]
  - Diarrhoea [Unknown]
  - Confusional state [Unknown]
  - Parkinsonism [Unknown]
  - Inappropriate schedule of product administration [Unknown]
